APPROVED DRUG PRODUCT: INDIUM IN 111 OXYQUINOLINE
Active Ingredient: INDIUM IN-111 OXYQUINOLINE
Strength: 1mCi/ML
Dosage Form/Route: INJECTABLE;INJECTION
Application: A202586 | Product #001 | TE Code: AP
Applicant: BWXT ITG CANADA INC
Approved: Jul 25, 2018 | RLD: No | RS: No | Type: RX